FAERS Safety Report 5471239-1 (Version None)
Quarter: 2007Q3

REPORT INFORMATION
  Report Type: 
  Country: None (occurrence: None)
  Receive Date: 20070928
  Receipt Date: 20070920
  Transmission Date: 20080115
  Serious: Yes (Other)
  Sender: FDA-Public Use
  Company Number: PT-ABBOTT-07P-130-0377654-00

PATIENT
  Sex: Female

DRUGS (2)
  1. KLACID OD [Suspect]
     Indication: TOOTH ABSCESS
     Route: 048
  2. ENALAPRIL MALEATE [Concomitant]
     Indication: DRUG USE FOR UNKNOWN INDICATION
     Route: 048

REACTIONS (5)
  - ANAL HAEMORRHAGE [None]
  - DIARRHOEA [None]
  - NAUSEA [None]
  - SLEEP DISORDER [None]
  - VOMITING [None]
